FAERS Safety Report 6807231-1 (Version None)
Quarter: 2010Q2

REPORT INFORMATION
  Report Type: 
  Country: None (occurrence: None)
  Receive Date: 20100629
  Receipt Date: 20080801
  Transmission Date: 20101027
  Serious: No
  Sender: FDA-Public Use
  Company Number: US-PFIZER INC-2008064213

PATIENT

DRUGS (4)
  1. VIAGRA [Suspect]
     Dates: start: 20080101
  2. FLEXERIL [Concomitant]
     Indication: RESTLESS LEGS SYNDROME
  3. TAMSULOSIN HYDROCHLORIDE [Concomitant]
     Indication: BENIGN PROSTATIC HYPERPLASIA
  4. ANTIHYPERTENSIVES [Concomitant]

REACTIONS (1)
  - DRUG INEFFECTIVE [None]
